FAERS Safety Report 5090724-8 (Version None)
Quarter: 2006Q3

REPORT INFORMATION
  Report Type: 
  Country: None (occurrence: None)
  Receive Date: 20060823
  Receipt Date: 20060810
  Transmission Date: 20061208
  Serious: Yes (Hospitalization)
  Sender: FDA-Public Use
  Company Number: 225873

PATIENT
  Age: 28 Year
  Sex: Female

DRUGS (3)
  1. RAPTIVA [Suspect]
     Indication: PSORIASIS
     Dosage: 1 MG/KG, 1/WEEK,
     Dates: end: 20060526
  2. CYCLOSPORINE [Concomitant]
  3. METHOTREXATE [Concomitant]

REACTIONS (3)
  - CRYPTOCOCCAL CUTANEOUS INFECTION [None]
  - IMMUNOSUPPRESSION [None]
  - MENINGITIS CRYPTOCOCCAL [None]
